FAERS Safety Report 12191481 (Version 2)
Quarter: 2016Q2

REPORT INFORMATION
  Report Type: Spontaneous
  Country: US (occurrence: US)
  Receive Date: 20160318
  Receipt Date: 20160406
  Transmission Date: 20160815
  Serious: Yes (Other)
  Sender: FDA-Public Use
  Company Number: US-TEVA-643635USA

PATIENT
  Age: 51 Year
  Sex: Male

DRUGS (1)
  1. ZECUITY [Suspect]
     Active Substance: SUMATRIPTAN SUCCINATE
     Indication: MIGRAINE
     Route: 062
     Dates: start: 201603, end: 201603

REACTIONS (6)
  - Application site pain [Unknown]
  - Application site swelling [Unknown]
  - Device battery issue [Unknown]
  - Application site erythema [Unknown]
  - Application site discolouration [Unknown]
  - Application site burn [Unknown]

NARRATIVE: CASE EVENT DATE: 201603
